FAERS Safety Report 13481749 (Version 6)
Quarter: 2019Q4

REPORT INFORMATION
  Report Type: Report from Study
  Country: US (occurrence: US)
  Receive Date: 20170425
  Receipt Date: 20191211
  Transmission Date: 20200122
  Serious: Yes (Hospitalization, Other)
  Sender: FDA-Public Use
  Company Number: US-ARIAD PHARMACEUTICALS, INC-2015US004817

PATIENT
  Age: 32 Year
  Sex: Male
  Weight: 75 kg

DRUGS (7)
  1. PONATINIB [Suspect]
     Active Substance: PONATINIB
     Dosage: 15 MILLIGRAM, QD
     Route: 048
  2. PONATINIB [Suspect]
     Active Substance: PONATINIB
     Dosage: 15 MILLIGRAM, QOD
     Route: 048
  3. TACROLIMUS. [Concomitant]
     Active Substance: TACROLIMUS
     Dosage: UNK
  4. PENICILLIN V POTASSIUM. [Concomitant]
     Active Substance: PENICILLIN V POTASSIUM
     Dosage: UNK
     Route: 065
  5. PONATINIB [Suspect]
     Active Substance: PONATINIB
     Dosage: 15 MILLIGRAM, QD
     Route: 048
  6. PONATINIB [Suspect]
     Active Substance: PONATINIB
     Dosage: 15 MILLIGRAM, QOD
     Route: 048
  7. PONATINIB [Suspect]
     Active Substance: PONATINIB
     Indication: ACUTE LYMPHOCYTIC LEUKAEMIA
     Dosage: 45 MILLIGRAM, QD
     Route: 048
     Dates: start: 201501

REACTIONS (29)
  - Depression [Unknown]
  - Graft versus host disease in liver [Unknown]
  - Off label use [Unknown]
  - Bone marrow transplant [Unknown]
  - Memory impairment [Not Recovered/Not Resolved]
  - Hyperhidrosis [Unknown]
  - Blood cholesterol increased [Unknown]
  - Suicidal behaviour [Unknown]
  - Skin hyperpigmentation [Not Recovered/Not Resolved]
  - Hypogammaglobulinaemia [Unknown]
  - Retinitis histoplasma [Unknown]
  - Blood pressure increased [Not Recovered/Not Resolved]
  - Mucosal inflammation [Unknown]
  - White blood cell count decreased [Recovered/Resolved]
  - Cystitis viral [Unknown]
  - Immunodeficiency [Unknown]
  - Anxiety [Unknown]
  - Neutrophil count decreased [Recovered/Resolved]
  - Chronic graft versus host disease [Unknown]
  - Gout [Not Recovered/Not Resolved]
  - Blood albumin increased [Unknown]
  - Dry eye [Unknown]
  - Hypergammaglobulinaemia [Unknown]
  - Graft versus host disease in skin [Unknown]
  - Graft versus host disease in gastrointestinal tract [Unknown]
  - Graft versus host disease in eye [Unknown]
  - Immunosuppression [Unknown]
  - Osteopenia [Unknown]
  - Heart rate increased [Unknown]

NARRATIVE: CASE EVENT DATE: 20150402
